FAERS Safety Report 11798206 (Version 2)
Quarter: 2016Q2

REPORT INFORMATION
  Report Type: Spontaneous
  Country: FR (occurrence: FR)
  Receive Date: 20151203
  Receipt Date: 20160606
  Transmission Date: 20160815
  Serious: Yes (Other)
  Sender: FDA-Public Use
  Company Number: FR-JNJFOC-20151125743

PATIENT
  Age: 25 Year
  Sex: Male

DRUGS (14)
  1. RISPERIDONE. [Suspect]
     Active Substance: RISPERIDONE
     Indication: AGGRESSION
     Route: 048
     Dates: start: 201410, end: 2014
  2. RISPERIDONE. [Suspect]
     Active Substance: RISPERIDONE
     Indication: AGITATION
     Route: 048
     Dates: start: 201308, end: 201408
  3. RISPERIDONE. [Suspect]
     Active Substance: RISPERIDONE
     Indication: PSYCHOTIC DISORDER
     Route: 048
     Dates: start: 201410, end: 2014
  4. LEVOMEPROMAZINE [Suspect]
     Active Substance: LEVOMEPROMAZINE
     Indication: AGGRESSION
     Route: 065
     Dates: start: 2014
  5. LEVOMEPROMAZINE [Suspect]
     Active Substance: LEVOMEPROMAZINE
     Indication: PSYCHOTIC DISORDER
     Route: 065
     Dates: start: 2014
  6. LEVOMEPROMAZINE [Suspect]
     Active Substance: LEVOMEPROMAZINE
     Indication: PSYCHOTIC DISORDER
     Route: 065
     Dates: start: 201309, end: 201408
  7. LOXAPINE. [Concomitant]
     Active Substance: LOXAPINE
     Indication: AGITATION
     Route: 065
     Dates: start: 201410, end: 2014
  8. LEVOMEPROMAZINE [Suspect]
     Active Substance: LEVOMEPROMAZINE
     Indication: AGGRESSION
     Route: 065
     Dates: start: 201309, end: 201408
  9. LEVOMEPROMAZINE [Suspect]
     Active Substance: LEVOMEPROMAZINE
     Indication: AGITATION
     Route: 065
     Dates: start: 2014
  10. RISPERIDONE. [Suspect]
     Active Substance: RISPERIDONE
     Indication: AGGRESSION
     Route: 048
     Dates: start: 201308, end: 201408
  11. LEVOMEPROMAZINE [Suspect]
     Active Substance: LEVOMEPROMAZINE
     Indication: AGITATION
     Route: 065
     Dates: start: 201309, end: 201408
  12. LOXAPINE. [Concomitant]
     Active Substance: LOXAPINE
     Indication: AGGRESSION
     Route: 065
     Dates: start: 201410, end: 2014
  13. RISPERIDONE. [Suspect]
     Active Substance: RISPERIDONE
     Indication: AGITATION
     Route: 048
     Dates: start: 201410, end: 2014
  14. RISPERIDONE. [Suspect]
     Active Substance: RISPERIDONE
     Indication: PSYCHOTIC DISORDER
     Route: 048
     Dates: start: 201308, end: 201408

REACTIONS (5)
  - Deep vein thrombosis [Recovering/Resolving]
  - Renal tubular necrosis [Unknown]
  - Psychotic disorder [Recovering/Resolving]
  - Rhabdomyolysis [Recovered/Resolved]
  - Treatment noncompliance [Unknown]

NARRATIVE: CASE EVENT DATE: 2014
